FAERS Safety Report 9780961 (Version 1)
Quarter: 2013Q4

REPORT INFORMATION
  Report Type: Spontaneous
  Country: US (occurrence: US)
  Receive Date: 20131224
  Receipt Date: 20131224
  Transmission Date: 20140711
  Serious: Yes (Other)
  Sender: FDA-Public Use
  Company Number: US-JNJFOC-20131210742

PATIENT
  Sex: 0

DRUGS (5)
  1. ACETAMINOPHEN [Suspect]
     Route: 065
  2. ACETAMINOPHEN [Suspect]
     Indication: PROCEDURAL PAIN
     Route: 065
  3. IBUPROFEN [Suspect]
     Indication: PROCEDURAL PAIN
     Route: 065
  4. OXYCODONE [Suspect]
     Indication: PROCEDURAL PAIN
     Route: 065
  5. HYDROCODONE [Suspect]
     Indication: PROCEDURAL PAIN
     Route: 065

REACTIONS (1)
  - Post procedural haemorrhage [Unknown]
